FAERS Safety Report 7016129-8 (Version None)
Quarter: 2010Q3

REPORT INFORMATION
  Report Type: 
  Country: None (occurrence: None)
  Receive Date: 20100923
  Receipt Date: 20100917
  Transmission Date: 20110219
  Serious: Yes (Hospitalization)
  Sender: FDA-Public Use
  Company Number: 2010SP028907

PATIENT
  Age: 53 Year
  Sex: Male
  Weight: 123 kg

DRUGS (11)
  1. PEGINTERFERON ALFA-2B [Suspect]
     Indication: HEPATIC CIRRHOSIS
     Dosage: 150 MCG; SC
     Route: 058
     Dates: start: 20100515, end: 20100522
  2. PEGINTERFERON ALFA-2B [Suspect]
     Indication: HEPATITIS C
     Dosage: 150 MCG; SC
     Route: 058
     Dates: start: 20100515, end: 20100522
  3. PEGINTERFERON ALFA-2B [Suspect]
     Indication: HEPATIC CIRRHOSIS
     Dosage: 150 MCG; SC
     Route: 058
     Dates: start: 20100529
  4. PEGINTERFERON ALFA-2B [Suspect]
     Indication: HEPATITIS C
     Dosage: 150 MCG; SC
     Route: 058
     Dates: start: 20100529
  5. RIBAVIRIN [Suspect]
     Indication: HEPATIC CIRRHOSIS
     Dosage: 1400 MG; PO
     Route: 048
     Dates: start: 20100514, end: 20100521
  6. RIBAVIRIN [Suspect]
     Indication: HEPATIC CIRRHOSIS
     Dosage: 1400 MG; PO
     Route: 048
     Dates: start: 20100529
  7. HUMAN INSULIN (CON.) [Concomitant]
  8. BARNIDIPINE HYDROCHLORIDE (CON.) [Concomitant]
  9. TELMISARTAN THYDROCHLORITIAZIDE (CON.) [Concomitant]
  10. RAMIPRIL (CON.) [Concomitant]
  11. CARDIOASPIRIN (CON.) [Concomitant]

REACTIONS (1)
  - NEPHROLITHIASIS [None]
